FAERS Safety Report 25842406 (Version 1)
Quarter: 2025Q3

REPORT INFORMATION
  Report Type: Spontaneous
  Country: US (occurrence: None)
  Receive Date: 20250924
  Receipt Date: 20250924
  Transmission Date: 20251021
  Serious: Yes (Other)
  Sender: FDA-CTU
  Company Number: None

PATIENT
  Age: 58 Year
  Sex: Female
  Weight: 57.6 kg

DRUGS (7)
  1. ROSUVASTATIN CALCIUM [Suspect]
     Active Substance: ROSUVASTATIN CALCIUM
     Indication: Blood cholesterol increased
     Dosage: OTHER QUANTITY : 1 TABLET(S);?FREQUENCY : DAILY;?
     Route: 048
     Dates: start: 20240920, end: 20250107
  2. levothyroxine 88 [Concomitant]
  3. fluoxetine 10 [Concomitant]
  4. VITAMINS [Concomitant]
     Active Substance: VITAMINS
  5. TYLENOL [Concomitant]
     Active Substance: ACETAMINOPHEN
  6. MOTRIN [Concomitant]
     Active Substance: IBUPROFEN
  7. NAPROXEN [Concomitant]
     Active Substance: NAPROXEN

REACTIONS (5)
  - Temporomandibular pain and dysfunction syndrome [None]
  - Neck pain [None]
  - Arthralgia [None]
  - Myofascial pain syndrome [None]
  - Drug interaction [None]

NARRATIVE: CASE EVENT DATE: 20241028
